FAERS Safety Report 23154109 (Version 1)
Quarter: 2023Q4

REPORT INFORMATION
  Report Type: Spontaneous
  Country: US (occurrence: US)
  Receive Date: 20231107
  Receipt Date: 20231107
  Transmission Date: 20240109
  Serious: No
  Sender: FDA-Public Use
  Company Number: US-BRISTOL-MYERS SQUIBB COMPANY-2023-158542

PATIENT
  Age: 51 Year
  Sex: Male
  Weight: 89.81 kg

DRUGS (1)
  1. REVLIMID [Suspect]
     Active Substance: LENALIDOMIDE
     Indication: Plasma cell myeloma
     Dosage: 3WKSON/1WKOFF
     Route: 048

REACTIONS (4)
  - Skin exfoliation [Recovered/Resolved]
  - Sinus disorder [Unknown]
  - Restlessness [Unknown]
  - Drug hypersensitivity [Unknown]
